FAERS Safety Report 22169288 (Version 1)
Quarter: 2023Q2

REPORT INFORMATION
  Report Type: Report from Study
  Country: NL (occurrence: NL)
  Receive Date: 20230404
  Receipt Date: 20230404
  Transmission Date: 20230721
  Serious: Yes (Hospitalization, Other)
  Sender: FDA-Public Use
  Company Number: NL-ABBVIE-4700991

PATIENT
  Sex: Female

DRUGS (6)
  1. HUMIRA [Suspect]
     Active Substance: ADALIMUMAB
     Indication: Crohn^s disease
     Route: 058
     Dates: start: 202003, end: 2021
  2. RINVOQ [Suspect]
     Active Substance: UPADACITINIB
     Indication: Crohn^s disease
     Dosage: INDUCTION DOSE: 45 MG
     Route: 048
  3. RINVOQ [Suspect]
     Active Substance: UPADACITINIB
     Indication: Crohn^s disease
     Dosage: MAINTENANCE DOSE: 15 MG OR 30 MG
     Route: 048
  4. USTEKINUMAB [Suspect]
     Active Substance: USTEKINUMAB
     Indication: Product used for unknown indication
     Dosage: FREQUENCY WAS CHANGED TO EVERY 4 WEEKS
     Route: 065
     Dates: start: 202011
  5. METHOTREXATE [Concomitant]
     Active Substance: METHOTREXATE
     Indication: Product used for unknown indication
     Dates: start: 2022
  6. PREDNISONE [Concomitant]
     Active Substance: PREDNISONE
     Indication: Product used for unknown indication
     Dates: start: 2023

REACTIONS (23)
  - Gastroenteritis [Unknown]
  - Off label use [Not Recovered/Not Resolved]
  - Faecaloma [Unknown]
  - Aphthous ulcer [Unknown]
  - Abdominal pain [Unknown]
  - Diarrhoea [Unknown]
  - Faecal calprotectin increased [Unknown]
  - Ileostomy closure [Unknown]
  - Unevaluable event [Unknown]
  - Nausea [Unknown]
  - Vomiting [Unknown]
  - Intentional product misuse [Unknown]
  - Vaginal infection [Unknown]
  - Headache [Unknown]
  - Unevaluable event [Unknown]
  - Immunoglobulins increased [Unknown]
  - Transferrin saturation decreased [Unknown]
  - Colitis [Unknown]
  - Serum ferritin decreased [Unknown]
  - Aspartate aminotransferase decreased [Unknown]
  - Haemoglobin decreased [Unknown]
  - C-reactive protein increased [Unknown]
  - Lymphocyte count decreased [Unknown]

NARRATIVE: CASE EVENT DATE: 20201001
